FAERS Safety Report 8758328 (Version 3)
Quarter: 2012Q4

REPORT INFORMATION
  Report Type: Spontaneous
  Country: US (occurrence: None)
  Receive Date: 20120816
  Receipt Date: 20121015
  Transmission Date: 20130627
  Serious: Yes (Death)
  Sender: FDA-Public Use
  Company Number: ACO_31367_2012

PATIENT
  Age: 54 Year
  Sex: Female

DRUGS (3)
  1. AMPYRA (DALFAMPRIDINE) TABLET, 10MG [Suspect]
     Indication: MULTIPLE SCLEROSIS
     Route: 048
     Dates: start: 20100322
  2. PROZAC (FLUOXETINE HYDROCHLORIDE) [Concomitant]
  3. RITUXIMAB (RITUXIMAB) [Concomitant]

REACTIONS (6)
  - Hyperthermia [None]
  - Multiple sclerosis [None]
  - Thermal burn [None]
  - Blood urea increased [None]
  - Blood chloride increased [None]
  - Dehydration [None]
